FAERS Safety Report 7275854-4 (Version None)
Quarter: 2011Q1

REPORT INFORMATION
  Report Type: 
  Country: None (occurrence: None)
  Receive Date: 20110204
  Receipt Date: 20110128
  Transmission Date: 20110831
  Serious: Yes (Other)
  Sender: FDA-Public Use
  Company Number: US-JNJFOC-20110200251

PATIENT
  Sex: Male
  Weight: 75.3 kg

DRUGS (2)
  1. FENTANYL-100 [Suspect]
     Indication: MIGRAINE
     Route: 062
  2. FENTANYL-100 [Suspect]
     Indication: PAIN
     Dosage: NDC 0781-7241-55
     Route: 062

REACTIONS (7)
  - CEREBRAL CYST [None]
  - MIGRAINE [None]
  - DRUG INEFFECTIVE [None]
  - HALLUCINATION [None]
  - HALLUCINATION, VISUAL [None]
  - INAPPROPRIATE SCHEDULE OF DRUG ADMINISTRATION [None]
  - VIITH NERVE PARALYSIS [None]
